FAERS Safety Report 10232397 (Version 1)
Quarter: 2014Q2

REPORT INFORMATION
  Report Type: Spontaneous
  Country: US (occurrence: None)
  Receive Date: 20140611
  Receipt Date: 20140611
  Transmission Date: 20141212
  Serious: Yes (Death)
  Sender: FDA-Public Use
  Company Number: None

PATIENT
  Age: 82 Year
  Sex: Female

DRUGS (15)
  1. CAPECITABINE [Suspect]
     Indication: COLON CANCER
     Route: 048
     Dates: start: 20140515
  2. XELODA [Suspect]
     Route: 048
     Dates: start: 20140314, end: 20140514
  3. XARELTO [Concomitant]
  4. CARVEDILOL [Concomitant]
  5. AMLODIPINE BESYLATE [Concomitant]
  6. FERROUS SULF [Concomitant]
  7. LISINOPRIL [Concomitant]
  8. OMEPRAZOLE [Concomitant]
  9. MULTI VITAMIN [Concomitant]
  10. SIMVASTATIN [Concomitant]
  11. CALCIUM [Concomitant]
  12. VITAMIN D3 [Concomitant]
  13. VITAMIN C [Concomitant]
  14. VITAMIN D [Concomitant]
  15. VITAMIN E [Concomitant]

REACTIONS (1)
  - Death [None]
